FAERS Safety Report 5809171-3 (Version None)
Quarter: 2008Q3

REPORT INFORMATION
  Report Type: 
  Country: None (occurrence: None)
  Receive Date: 20080714
  Receipt Date: 20080702
  Transmission Date: 20090109
  Serious: Yes (Life-Threatening, Hospitalization)
  Sender: FDA-Public Use
  Company Number: ES-PFIZER INC-2008055243

PATIENT
  Age: 81 Year
  Sex: Male

DRUGS (6)
  1. ALDACTONE [Suspect]
     Indication: HYPERTENSION
     Route: 048
  2. DIGOXIN [Interacting]
     Indication: CARDIAC FAILURE
     Route: 048
  3. FUROSEMIDE [Interacting]
     Indication: HYPERTENSION
     Route: 048
  4. COZAAR [Concomitant]
     Indication: HYPERTENSION
     Route: 048
  5. PRANDIN [Concomitant]
     Indication: TYPE 2 DIABETES MELLITUS
     Route: 048
  6. SINTROM [Concomitant]
     Route: 048

REACTIONS (4)
  - DRUG INTERACTION [None]
  - HYPERKALAEMIA [None]
  - RENAL FAILURE ACUTE [None]
  - THERAPEUTIC AGENT TOXICITY [None]
